FAERS Safety Report 8505314-1 (Version None)
Quarter: 2012Q3

REPORT INFORMATION
  Report Type: 
  Country: None (occurrence: None)
  Receive Date: 20120712
  Receipt Date: 20120706
  Transmission Date: 20120928
  Serious: Yes (Other)
  Sender: FDA-Public Use
  Company Number: US-PFIZER INC-2012162476

PATIENT
  Sex: Male

DRUGS (1)
  1. LYRICA [Suspect]
     Indication: NEURALGIA
     Dosage: 150 MG, 2X/DAY

REACTIONS (6)
  - DISTURBANCE IN ATTENTION [None]
  - WEIGHT DECREASED [None]
  - DYSPHAGIA [None]
  - COLITIS [None]
  - DRUG DEPENDENCE [None]
  - VISION BLURRED [None]
